FAERS Safety Report 17247254 (Version 1)
Quarter: 2020Q1

REPORT INFORMATION
  Report Type: Spontaneous
  Country: US (occurrence: US)
  Receive Date: 20200107
  Receipt Date: 20200107
  Transmission Date: 20200409
  Serious: Yes (Hospitalization)
  Sender: FDA-Public Use
  Company Number: None

PATIENT
  Age: 80 Year
  Sex: Female
  Weight: 60.3 kg

DRUGS (23)
  1. VITAMIN D3 [Concomitant]
     Active Substance: CHOLECALCIFEROL
  2. ZOFRAN [Concomitant]
     Active Substance: ONDANSETRON HYDROCHLORIDE
  3. ISOSORBIDE. [Concomitant]
     Active Substance: ISOSORBIDE
  4. DECADRON [Concomitant]
     Active Substance: DEXAMETHASONE
  5. PRAVASTATIN. [Concomitant]
     Active Substance: PRAVASTATIN
  6. SYNTHROID [Concomitant]
     Active Substance: LEVOTHYROXINE SODIUM
  7. OXYBUTYNIN. [Concomitant]
     Active Substance: OXYBUTYNIN CHLORIDE
  8. FLORASTOR [Concomitant]
     Active Substance: SACCHAROMYCES CEREVISIAE
  9. DULERA [Concomitant]
     Active Substance: FORMOTEROL FUMARATE DIHYDRATE\MOMETASONE FUROATE
  10. VITAMIN B12 [Concomitant]
     Active Substance: CYANOCOBALAMIN
  11. ULORIC [Concomitant]
     Active Substance: FEBUXOSTAT
  12. MULTIVITAMIN [Concomitant]
     Active Substance: VITAMINS
  13. LORAZEPAM. [Concomitant]
     Active Substance: LORAZEPAM
  14. NINLARO [Suspect]
     Active Substance: IXAZOMIB CITRATE
     Indication: PLASMA CELL MYELOMA
     Dosage: ?          OTHER FREQUENCY:ONCE WEEKLY;?
     Route: 048
     Dates: start: 20191102, end: 20200106
  15. TYLENOL [Concomitant]
     Active Substance: ACETAMINOPHEN
  16. FERROUS SULFATE. [Concomitant]
     Active Substance: FERROUS SULFATE
  17. DEXAMETHASONE. [Suspect]
     Active Substance: DEXAMETHASONE
     Indication: PLASMA CELL MYELOMA
     Dosage: ?          OTHER FREQUENCY:ONCE WEEKLY;?
     Route: 048
     Dates: start: 20191102, end: 20200106
  18. FOLIC ACID. [Concomitant]
     Active Substance: FOLIC ACID
  19. DULOXETINE. [Concomitant]
     Active Substance: DULOXETINE
  20. FAMOTIDINE. [Concomitant]
     Active Substance: FAMOTIDINE
  21. FENTANYL. [Concomitant]
     Active Substance: FENTANYL
  22. SPIRIVA [Concomitant]
     Active Substance: TIOTROPIUM BROMIDE MONOHYDRATE
  23. COLACE [Concomitant]
     Active Substance: DOCUSATE SODIUM

REACTIONS (1)
  - Pneumonia [None]

NARRATIVE: CASE EVENT DATE: 20200107
